FAERS Safety Report 12185720 (Version 2)
Quarter: 2016Q1

REPORT INFORMATION
  Report Type: Spontaneous
  Country: US (occurrence: US)
  Receive Date: 20160316
  Receipt Date: 20160324
  Transmission Date: 20160526
  Serious: Yes (Other)
  Sender: FDA-Public Use
  Company Number: US-ROXANE LABORATORIES, INC.-2016-RO-00487RO

PATIENT
  Sex: Female

DRUGS (2)
  1. DIGOXIN. [Suspect]
     Active Substance: DIGOXIN
     Indication: CARDIAC FAILURE
  2. DIGOXIN. [Suspect]
     Active Substance: DIGOXIN
     Indication: ATRIAL FIBRILLATION
     Route: 065

REACTIONS (2)
  - Atrial fibrillation [Unknown]
  - Cardiac failure [Unknown]
